FAERS Safety Report 6448779-1 (Version None)
Quarter: 2009Q4

REPORT INFORMATION
  Report Type: 
  Country: None (occurrence: None)
  Receive Date: 20091120
  Receipt Date: 20091109
  Transmission Date: 20100525
  Serious: Yes (Hospitalization, Other)
  Sender: FDA-Public Use
  Company Number: PHEH2009US14506

PATIENT
  Sex: Female
  Weight: 61.224 kg

DRUGS (5)
  1. RECLAST [Suspect]
     Indication: OSTEOPOROSIS
     Dosage: 5 MG, QYEAR
     Route: 042
     Dates: start: 20090924, end: 20090924
  2. ORENCIA [Concomitant]
     Indication: RHEUMATOID ARTHRITIS
     Dosage: 750 UNK, Q 4 MOS.
     Route: 042
  3. CELEBREX [Concomitant]
     Indication: RHEUMATOID ARTHRITIS
     Dosage: 200 UNK, QD
     Route: 048
  4. FEMARA [Concomitant]
  5. CRESTOR [Concomitant]

REACTIONS (7)
  - BACK PAIN [None]
  - CHILLS [None]
  - HEADACHE [None]
  - MENINGITIS [None]
  - NAUSEA [None]
  - PYREXIA [None]
  - VOMITING [None]
